FAERS Safety Report 9786443 (Version 2)
Quarter: 2014Q1

REPORT INFORMATION
  Report Type: Spontaneous
  Country: IT (occurrence: IT)
  Receive Date: 20131227
  Receipt Date: 20140206
  Transmission Date: 20141002
  Serious: Yes (Hospitalization)
  Sender: FDA-Public Use
  Company Number: IT-TEVA-452270ISR

PATIENT
  Age: 29 Year
  Sex: 0
  Weight: 65 kg

DRUGS (4)
  1. VINCRISTINE SULFATE [Suspect]
     Indication: NON-HODGKIN^S LYMPHOMA
     Dosage: 1 MG WEEKLY
     Route: 041
     Dates: start: 20130513, end: 20130704
  2. DOXORUBICINA ACCORD HEALTHCARE ITALIA [Suspect]
     Dosage: 45 MG CYCLICAL
     Route: 041
     Dates: start: 20130513, end: 20130704
  3. RITUXIMAB [Suspect]
     Indication: NON-HODGKIN^S LYMPHOMA
     Dosage: 675 MG CYCLICAL
     Route: 041
     Dates: start: 20130513, end: 20130704
  4. CYCLOPHOSPHAMIDE [Suspect]
     Indication: NON-HODGKIN^S LYMPHOMA
     Dosage: 900 MG CYCLICAL
     Route: 041
     Dates: start: 20130513, end: 20130704

REACTIONS (3)
  - Febrile neutropenia [Recovered/Resolved]
  - Pneumonia [Recovered/Resolved]
  - Pyrexia [Recovered/Resolved]
